FAERS Safety Report 12183545 (Version 4)
Quarter: 2016Q2

REPORT INFORMATION
  Report Type: Report from Study
  Country: US (occurrence: US)
  Receive Date: 20160316
  Receipt Date: 20160406
  Transmission Date: 20160815
  Serious: Yes (Other)
  Sender: FDA-Public Use
  Company Number: US-AMGEN-USASL2016029369

PATIENT
  Age: 44 Year
  Sex: Female

DRUGS (2)
  1. ENBREL [Suspect]
     Active Substance: ETANERCEPT
     Indication: RHEUMATOID ARTHRITIS
     Dosage: 50 MG, WEEKLY
     Route: 065
     Dates: start: 201512
  2. ENBREL [Suspect]
     Active Substance: ETANERCEPT
     Dosage: UNK, QWK
     Route: 065
     Dates: start: 201603

REACTIONS (27)
  - Activities of daily living impaired [Unknown]
  - Condition aggravated [Unknown]
  - Dysstasia [Unknown]
  - Dizziness [Unknown]
  - Impaired work ability [Unknown]
  - Malaise [Unknown]
  - Finger deformity [Unknown]
  - Insomnia [Unknown]
  - Pain [Unknown]
  - Gait disturbance [Unknown]
  - Crying [Unknown]
  - Feeling abnormal [Unknown]
  - Skin fissures [Unknown]
  - Injection site extravasation [Unknown]
  - Impaired driving ability [Unknown]
  - Arthralgia [Unknown]
  - Musculoskeletal pain [Unknown]
  - Abasia [Unknown]
  - Mobility decreased [Unknown]
  - Muscle spasms [Unknown]
  - Nausea [Unknown]
  - Neck pain [Unknown]
  - Device malfunction [Unknown]
  - Injection site pain [Unknown]
  - Fatigue [Unknown]
  - Pain in extremity [Unknown]
  - Device use error [Unknown]

NARRATIVE: CASE EVENT DATE: 2016
